FAERS Safety Report 21084321 (Version 3)
Quarter: 2023Q2

REPORT INFORMATION
  Report Type: Report from Study
  Country: US (occurrence: US)
  Receive Date: 20220714
  Receipt Date: 20230511
  Transmission Date: 20230721
  Serious: Yes (Death, Other)
  Sender: FDA-Public Use
  Company Number: US-JAZZ-2022-US-016197

PATIENT
  Sex: Female

DRUGS (26)
  1. EPIDIOLEX [Suspect]
     Active Substance: CANNABIDIOL
     Indication: Seizure
     Dosage: UNK
     Dates: start: 20200312
  2. EPIDIOLEX [Suspect]
     Active Substance: CANNABIDIOL
     Dosage: 2 MILLILITER, BID
     Route: 048
  3. TYLENOL [Concomitant]
     Active Substance: ACETAMINOPHEN
     Indication: Pain
  4. TYLENOL [Concomitant]
     Active Substance: ACETAMINOPHEN
     Indication: Pyrexia
  5. ASTELIN [Concomitant]
     Active Substance: AZELASTINE HYDROCHLORIDE
     Indication: Product used for unknown indication
  6. THORAZINE [Concomitant]
     Active Substance: CHLORPROMAZINE
     Indication: Agitation
  7. THORAZINE [Concomitant]
     Active Substance: CHLORPROMAZINE
     Indication: Restlessness
  8. ONFI [Concomitant]
     Active Substance: CLOBAZAM
     Indication: Product used for unknown indication
     Dosage: 5 MILLILITER, BID
  9. DICLOFENAC [Concomitant]
     Active Substance: DICLOFENAC
     Indication: Arthralgia
  10. DICLOFENAC [Concomitant]
     Active Substance: DICLOFENAC
     Indication: Headache
  11. HALDOL [Concomitant]
     Active Substance: HALOPERIDOL
     Indication: Delirium
  12. FLUARIX NOS [Concomitant]
     Active Substance: INFLUENZA VIRUS VACCINE
     Indication: Product used for unknown indication
  13. XYLOCAINE [Concomitant]
     Active Substance: LIDOCAINE HYDROCHLORIDE
     Indication: Wound complication
  14. ATIVAN [Concomitant]
     Active Substance: LORAZEPAM
     Indication: Panic attack
  15. MILK OF MAGNESIA [Concomitant]
     Active Substance: MAGNESIUM HYDROXIDE
     Indication: Constipation
     Dosage: 30 MILLILITER, TID
  16. DOLOPHINE [Concomitant]
     Active Substance: METHADONE HYDROCHLORIDE
     Indication: Pain
     Dosage: UNK, BID
  17. MIDAZOLAM [Concomitant]
     Active Substance: MIDAZOLAM
     Indication: Seizure
  18. MIDAZOLAM [Concomitant]
     Active Substance: MIDAZOLAM
     Indication: Terminal agitation
  19. ROXANOL [Concomitant]
     Active Substance: MORPHINE SULFATE
     Indication: Dyspnoea
  20. ROXANOL [Concomitant]
     Active Substance: MORPHINE SULFATE
     Indication: Pain
  21. LUMINAL [FLUOXETINE HYDROCHLORIDE] [Concomitant]
     Indication: Product used for unknown indication
  22. PHENOBARBITAL [Concomitant]
     Active Substance: PHENOBARBITAL
     Indication: Seizure
  23. TRANSDERM SCOP [Concomitant]
     Active Substance: SCOPOLAMINE
     Indication: Product used for unknown indication
  24. SIMETHICONE (DIMETHICONE) [Concomitant]
     Active Substance: DIMETHICONE
     Indication: Flatulence
     Dosage: 80 MILLIGRAM
  25. FLEET [SODIUM PHOSPHATE DIBASIC;SODIUM PHOSPHATE MONOBASIC] [Concomitant]
     Indication: Constipation
     Dosage: UNK, PRN
  26. KENALOG [Concomitant]
     Active Substance: TRIAMCINOLONE ACETONIDE
     Indication: Eczema

REACTIONS (5)
  - Lennox-Gastaut syndrome [Fatal]
  - Failure to thrive [Fatal]
  - Cognitive disorder [Fatal]
  - Developmental delay [Fatal]
  - Treatment noncompliance [Unknown]
